FAERS Safety Report 7736352-4 (Version None)
Quarter: 2011Q3

REPORT INFORMATION
  Report Type: 
  Country: None (occurrence: None)
  Receive Date: 20110902
  Receipt Date: 20110826
  Transmission Date: 20111222
  Serious: Yes (Other)
  Sender: FDA-Public Use
  Company Number: CIP11002110

PATIENT
  Age: 64 Year
  Sex: Female

DRUGS (2)
  1. ACTONEL [Suspect]
     Dosage: ORAL
     Route: 048
  2. BONIVA [Suspect]

REACTIONS (6)
  - JAW DISORDER [None]
  - UNEVALUABLE EVENT [None]
  - BREAST CANCER [None]
  - GASTROINTESTINAL DISORDER [None]
  - MUSCLE SPASMS [None]
  - VITAMIN B12 DEFICIENCY [None]
